FAERS Safety Report 7793220-X (Version None)
Quarter: 2011Q4

REPORT INFORMATION
  Report Type: 
  Country: None (occurrence: None)
  Receive Date: 20111003
  Receipt Date: 20110920
  Transmission Date: 20120403
  Serious: Yes (Hospitalization, Other)
  Sender: FDA-Public Use
  Company Number: US-ELI_LILLY_AND_COMPANY-US201102006751

PATIENT
  Sex: Female
  Weight: 86.168 kg

DRUGS (13)
  1. GLYBURIDE [Concomitant]
     Indication: TYPE 2 DIABETES MELLITUS
     Dosage: 5 MG, EACH MORNING
  2. GLYBURIDE [Concomitant]
     Dosage: 5 MG, UNK
     Route: 048
  3. ASPIRIN [Concomitant]
     Dosage: 81 MG, DAILY (1/D)
     Route: 048
  4. GLYBURIDE [Concomitant]
     Dosage: 5 MG, EACH EVENING
  5. FISH OIL [Concomitant]
     Dosage: 7200 MG, DAILY (1/D)
     Route: 048
  6. LISINOPRIL /USA/ [Concomitant]
     Indication: BLOOD PRESSURE
     Dosage: 20 MG, DAILY (1/D)
     Route: 048
  7. GLUCOPHAGE /USA/ [Concomitant]
     Indication: TYPE 2 DIABETES MELLITUS
     Dosage: 1500 MG, DAILY (1/D)
     Route: 048
  8. GLYBURIDE [Concomitant]
     Dosage: 2.5 MG, EACH EVENING
  9. BYETTA [Suspect]
     Dosage: 5 UG, BID
     Route: 058
  10. BYETTA [Suspect]
     Indication: TYPE 2 DIABETES MELLITUS
     Dosage: 5 UG, 2/D
     Route: 058
  11. LEVOTHYROXINE [Concomitant]
     Indication: THYROID DISORDER
     Dosage: 100 MG, DAILY (1/D)
     Route: 048
  12. NEURONTIN /USA/ [Concomitant]
     Indication: OESOPHAGEAL ULCER
     Dosage: UNK, DAILY (1/D)
  13. PRAVASTATIN [Concomitant]
     Indication: BLOOD CHOLESTEROL
     Dosage: 20 MG, DAILY (1/D)
     Route: 048

REACTIONS (7)
  - OESOPHAGEAL OBSTRUCTION [None]
  - BLOOD GLUCOSE DECREASED [None]
  - FEELING COLD [None]
  - WEIGHT DECREASED [None]
  - URINARY TRACT INFECTION [None]
  - BLOOD GLUCOSE INCREASED [None]
  - NAUSEA [None]
